FAERS Safety Report 4297435-7 (Version None)
Quarter: 2004Q1

REPORT INFORMATION
  Report Type: 
  Country: None (occurrence: None)
  Receive Date: 20040218
  Receipt Date: 20031212
  Transmission Date: 20041129
  Serious: Yes (Other)
  Sender: FDA-Public Use
  Company Number: US-ROCHE-354037

PATIENT
  Age: 4 Year
  Sex: Male
  Weight: 20.9 kg

DRUGS (1)
  1. TAMIFLU [Suspect]
     Indication: INFLUENZA
     Dosage: DOSING REGIMEN REPORTED AS 3/4 TSP BID X 5 DAYS.
     Route: 048
     Dates: start: 20031208, end: 20031213

REACTIONS (1)
  - HAEMATOCHEZIA [None]
